FAERS Safety Report 24030150 (Version 1)
Quarter: 2024Q2

REPORT INFORMATION
  Report Type: Spontaneous
  Country: US (occurrence: None)
  Receive Date: 20240628
  Receipt Date: 20240628
  Transmission Date: 20240716
  Serious: Yes (Hospitalization)
  Sender: FDA-Public Use
  Company Number: None

PATIENT
  Age: 43 Year
  Sex: Male

DRUGS (2)
  1. TEMOZOLOMIDE [Suspect]
     Active Substance: TEMOZOLOMIDE
     Indication: Brain neoplasm malignant
     Dosage: 120MG DAILY BY MOUTH?
     Route: 048
     Dates: start: 202401
  2. TEMOZOLOMIDE [Suspect]
     Active Substance: TEMOZOLOMIDE
     Indication: Brain neoplasm malignant
     Dosage: 120MG DAILY BY MOUTH
     Route: 048
     Dates: start: 202401

REACTIONS (4)
  - Renal haemorrhage [None]
  - Toxicity to various agents [None]
  - Platelet count decreased [None]
  - Renal failure [None]

NARRATIVE: CASE EVENT DATE: 20240522
